FAERS Safety Report 14899557 (Version 1)
Quarter: 2018Q2

REPORT INFORMATION
  Report Type: Report from Study
  Country: US (occurrence: US)
  Receive Date: 20180516
  Receipt Date: 20180516
  Transmission Date: 20180711
  Serious: Yes (Hospitalization)
  Sender: FDA-Public Use
  Company Number: US-CIPLA LTD.-2018US17685

PATIENT

DRUGS (7)
  1. OMEPRAZOLE. [Interacting]
     Active Substance: OMEPRAZOLE
     Indication: DERMATITIS ATOPIC
     Dosage: 20 MG, SINGLE DOSE
     Route: 048
  2. METOPROLOL. [Interacting]
     Active Substance: METOPROLOL
     Indication: DERMATITIS ATOPIC
     Dosage: 100 MG, SINGLE DOSE
     Route: 048
  3. DUPILUMAB [Interacting]
     Active Substance: DUPILUMAB
     Dosage: 300 MG, WEEKLY ON DAYS 15, 22, 29, 36, 43, AND 50
     Route: 058
  4. MIDAZOLAM [Interacting]
     Active Substance: MIDAZOLAM HYDROCHLORIDE
     Indication: DERMATITIS ATOPIC
     Dosage: 2 MG, SINGLE DOSE (2MG/ML SYRUP)
     Route: 048
  5. CAFFEINE. [Interacting]
     Active Substance: CAFFEINE
     Indication: DERMATITIS ATOPIC
     Dosage: 100 MG, SINGLE DOSE (20 MG/ML ORAL SOLUTION OF CAFFEINE CITRATE)
     Route: 048
  6. WARFARIN [Suspect]
     Active Substance: WARFARIN
     Indication: DERMATITIS ATOPIC
     Dosage: 10 MG, SINGLE DOSE GIVEN AFTER A FAST OF AT LEAST 8 HOURS
     Route: 048
  7. DUPILUMAB [Interacting]
     Active Substance: DUPILUMAB
     Indication: DERMATITIS ATOPIC
     Dosage: 600 MG, LOADING DOSE
     Route: 058

REACTIONS (2)
  - Systemic inflammatory response syndrome [Recovered/Resolved]
  - Drug interaction [Unknown]
